FAERS Safety Report 7602690-9 (Version None)
Quarter: 2011Q3

REPORT INFORMATION
  Report Type: 
  Country: None (occurrence: None)
  Receive Date: 20110712
  Receipt Date: 20110707
  Transmission Date: 20111222
  Serious: Yes (Hospitalization)
  Sender: FDA-Public Use
  Company Number: AU-CELGENEUS-008-20785-11070415

PATIENT
  Sex: Male

DRUGS (2)
  1. ANTI-INFLAMMATORY THERAPY [Concomitant]
     Route: 065
  2. THALIDOMIDE [Suspect]
     Indication: AMYLOIDOSIS
     Dosage: 100 MILLIGRAM
     Route: 048
     Dates: start: 20110309, end: 20110608

REACTIONS (1)
  - HAEMORRHAGE [None]
